FAERS Safety Report 7135205-2 (Version None)
Quarter: 2010Q4

REPORT INFORMATION
  Report Type: 
  Country: None (occurrence: None)
  Receive Date: 20101203
  Receipt Date: 20101129
  Transmission Date: 20110411
  Serious: No
  Sender: FDA-Public Use
  Company Number: US-PFIZER INC-2010160091

PATIENT
  Sex: Female
  Weight: 113.39 kg

DRUGS (5)
  1. TOVIAZ [Interacting]
     Indication: URINARY INCONTINENCE
     Dosage: 4 MG, 1X/DAY
     Dates: start: 20100901, end: 20101121
  2. POTASSIUM CHLORIDE [Interacting]
     Dosage: 10 MEQ, ALTERNATE DAY
     Dates: end: 20101101
  3. KLOR-CON [Suspect]
     Dosage: UNK
     Dates: end: 20101101
  4. PLAVIX [Concomitant]
     Indication: CARDIAC DISORDER
     Dosage: UNK
  5. ACETYLSALICYLIC ACID [Concomitant]
     Indication: CARDIAC DISORDER
     Dosage: UNK

REACTIONS (5)
  - ABDOMINAL DISTENSION [None]
  - CONSTIPATION [None]
  - DRUG INTERACTION [None]
  - INFLUENZA [None]
  - NAUSEA [None]
